FAERS Safety Report 10038730 (Version 1)
Quarter: 2014Q1

REPORT INFORMATION
  Report Type: Spontaneous
  Country: US (occurrence: None)
  Receive Date: 20140306
  Receipt Date: 20140306
  Transmission Date: 20141002
  Serious: Yes (Hospitalization)
  Sender: FDA-Public Use
  Company Number: 163-21880-13070210

PATIENT
  Age: 80 Year
  Sex: Male
  Weight: 65.32 kg

DRUGS (7)
  1. REVLIMID (LENALIDOMIDE) (CAPSULES) [Suspect]
     Indication: PLASMA CELL MYELOMA
     Dosage: 10 MG, 1 IN 1 D, PO
     Route: 048
     Dates: start: 201303
  2. VELCADE (BORTEZOMIB) (UNKNOWN) [Concomitant]
  3. METOPROLOL (METOPROLOL) (UNKNOWN) [Concomitant]
  4. PRAVASTATIN (PRAVASTATIN) (UNKNOWN) [Concomitant]
  5. ACTONEL (RISEDRONATE SODIUM) (UNKNOWN) [Concomitant]
  6. TYLENOL (PARACETAMOL) (UNKNOWN) [Concomitant]
  7. LIDOCAINE (LIDOCAINE) (POULTICE OR PATCH) [Concomitant]

REACTIONS (2)
  - Renal failure [None]
  - Rash pruritic [None]
